FAERS Safety Report 10418616 (Version 1)
Quarter: 2014Q2

REPORT INFORMATION
  Report Type: Spontaneous
  Country: US (occurrence: None)
  Receive Date: 20140613
  Receipt Date: 20140613
  Transmission Date: 20141212
  Serious: No
  Sender: FDA-Public Use
  Company Number: 1394980

PATIENT
  Sex: Male

DRUGS (3)
  1. ZELBORAF (VEMURAFENIB) (TABLET) [Suspect]
     Indication: BRAIN NEOPLASM MALIGNANT
     Dosage: 4 TABS IN AM, 4 TABS IN PM, UNKNOWN?
  2. DECADRON (DEXAMETHASONE) [Concomitant]
  3. METFORMIN (METFORMIN) [Concomitant]

REACTIONS (6)
  - Lethargy [None]
  - Fatigue [None]
  - Skin exfoliation [None]
  - Sunburn [None]
  - Drug intolerance [None]
  - Blood count abnormal [None]
